FAERS Safety Report 17039803 (Version 1)
Quarter: 2019Q4

REPORT INFORMATION
  Report Type: Other
  Country: GB (occurrence: GB)
  Receive Date: 20191116
  Receipt Date: 20191116
  Transmission Date: 20200122
  Serious: Yes (Other)
  Sender: FDA-Public Use
  Company Number: GB-MACLEODS PHARMACEUTICALS US LTD-MAC2019023765

PATIENT

DRUGS (4)
  1. OMEPRAZOLE. [Concomitant]
     Active Substance: OMEPRAZOLE
     Dosage: 1 DOSAGE FORM, TAKE ONE TWICE DAILY FOR A WEEK THEN 1 ONCE DAILY. 64 {DF}
     Route: 048
     Dates: start: 20181122, end: 20181213
  2. OMEPRAZOLE. [Concomitant]
     Active Substance: OMEPRAZOLE
     Indication: PRODUCT USED FOR UNKNOWN INDICATION
     Dosage: TAKE ONE TWICE DAILY FOR A WEEK THEN 1 ONCE DAILY.
     Route: 048
     Dates: start: 20181115, end: 20181121
  3. NAPROXEN. [Concomitant]
     Active Substance: NAPROXEN
     Indication: GOUT
     Dosage: 2 DOSAGE FORM, QD
     Route: 065
     Dates: start: 20181115, end: 20181213
  4. TAMSULOSIN 0.4 MG CAPSULE [Suspect]
     Active Substance: TAMSULOSIN HYDROCHLORIDE
     Indication: PRODUCT USED FOR UNKNOWN INDICATION
     Dosage: 400 MICROGRAM MODIFIED REEASE CAPSULE
     Route: 048
     Dates: start: 20190125

REACTIONS (2)
  - Rash [Recovered/Resolved]
  - Eye swelling [Unknown]

NARRATIVE: CASE EVENT DATE: 20190125
